FAERS Safety Report 15215855 (Version 1)
Quarter: 2018Q3

REPORT INFORMATION
  Report Type: Spontaneous
  Country: FR (occurrence: FR)
  Receive Date: 20180730
  Receipt Date: 20180730
  Transmission Date: 20181010
  Serious: Yes (Other)
  Sender: FDA-Public Use
  Company Number: FR-PFIZER INC-2018300820

PATIENT
  Age: 50 Year
  Sex: Female

DRUGS (2)
  1. TRAMADOL. [Suspect]
     Active Substance: TRAMADOL
     Dosage: 20 DF, SINGLE
     Route: 048
     Dates: start: 20180505, end: 20180506
  2. XANAX [Suspect]
     Active Substance: ALPRAZOLAM
     Dosage: 12 DF, SINGLE
     Route: 048
     Dates: start: 20180505, end: 20180505

REACTIONS (3)
  - Overdose [Unknown]
  - Toxicity to various agents [Recovered/Resolved]
  - Hepatitis cholestatic [Recovered/Resolved]

NARRATIVE: CASE EVENT DATE: 20180505
